FAERS Safety Report 6330843-9 (Version None)
Quarter: 2009Q3

REPORT INFORMATION
  Report Type: 
  Country: None (occurrence: None)
  Receive Date: 20090827
  Receipt Date: 20090820
  Transmission Date: 20100115
  Serious: Yes (Other)
  Sender: FDA-Public Use
  Company Number: US-JNJFOC-20090806933

PATIENT
  Sex: Male
  Weight: 103.42 kg

DRUGS (5)
  1. TOPAMAX [Suspect]
     Indication: MIGRAINE PROPHYLAXIS
     Route: 048
  2. ZANTAC [Concomitant]
     Route: 065
  3. NAPROXEN [Concomitant]
     Route: 065
  4. VICODIN [Concomitant]
     Route: 065
  5. MAXALT [Concomitant]
     Route: 065

REACTIONS (4)
  - DYSPNOEA [None]
  - HEADACHE [None]
  - OCULOGYRIC CRISIS [None]
  - PAIN IN JAW [None]
